FAERS Safety Report 16882774 (Version 1)
Quarter: 2019Q4

REPORT INFORMATION
  Report Type: Spontaneous
  Country: JP (occurrence: JP)
  Receive Date: 20191003
  Receipt Date: 20191003
  Transmission Date: 20200122
  Serious: Yes (Other)
  Sender: FDA-Public Use
  Company Number: JP-BRISTOL-MYERS SQUIBB COMPANY-BMS-2018-108227

PATIENT
  Age: 46 Year
  Sex: Male
  Weight: 63 kg

DRUGS (1)
  1. OPDIVO [Suspect]
     Active Substance: NIVOLUMAB
     Indication: NON-SMALL CELL LUNG CANCER RECURRENT
     Dosage: DOSE UNKNOWN
     Route: 041

REACTIONS (3)
  - Thyroiditis [Unknown]
  - Bone marrow failure [Unknown]
  - Hypothyroidism [Unknown]
